FAERS Safety Report 20073009 (Version 3)
Quarter: 2022Q1

REPORT INFORMATION
  Report Type: Spontaneous
  Country: PA (occurrence: None)
  Receive Date: 20211116
  Receipt Date: 20220103
  Transmission Date: 20220423
  Serious: Yes (Other)
  Sender: FDA-Public Use
  Company Number: PA-ROCHE-2952482

PATIENT
  Age: 64 Year
  Sex: Male
  Weight: 62 kg

DRUGS (4)
  1. TECENTRIQ [Suspect]
     Active Substance: ATEZOLIZUMAB
     Indication: Non-small cell lung cancer
     Dosage: EXACT ADMINISTRATION DATE: 06-SEP-2021 AND 28-SEP-2021, 25-OCT-2021
     Route: 041
     Dates: start: 20210906, end: 20211025
  2. AVASTIN [Suspect]
     Active Substance: BEVACIZUMAB
     Indication: Non-small cell lung cancer
     Dosage: EXACT ADMINISTRATION DATE: 06-SEP-2021 AND 28-SEP-2021, 25-OCT-2021
     Route: 042
     Dates: start: 20210906, end: 20211025
  3. CARBOPLATIN [Concomitant]
     Active Substance: CARBOPLATIN
     Indication: Non-small cell lung cancer
     Dosage: DOSE AND FREQUENCY WERE NOT REPORTED
     Dates: start: 20210906, end: 20211025
  4. PACLITAXEL [Concomitant]
     Active Substance: PACLITAXEL
     Indication: Non-small cell lung cancer
     Dosage: DOSE AND FREQUENCY WERE NOT REPORTED
     Dates: start: 20210906, end: 20211025

REACTIONS (1)
  - Disease progression [Unknown]

NARRATIVE: CASE EVENT DATE: 20210910
